FAERS Safety Report 13266180 (Version 9)
Quarter: 2017Q2

REPORT INFORMATION
  Report Type: Report from Study
  Country: US (occurrence: US)
  Receive Date: 20170223
  Receipt Date: 20170626
  Transmission Date: 20170830
  Serious: Yes (Hospitalization)
  Sender: FDA-Public Use
  Company Number: US-ACTELION-A-US2017-149961

PATIENT
  Age: 52 Year
  Sex: Female
  Weight: 82.99 kg

DRUGS (24)
  1. VELETRI [Suspect]
     Active Substance: EPOPROSTENOL
     Dosage: 12 NG/KG, PER MIN
     Route: 042
  2. VELETRI [Suspect]
     Active Substance: EPOPROSTENOL
     Dosage: 25 NG/KG, PER MIN
     Route: 042
  3. XYZAL [Concomitant]
     Active Substance: LEVOCETIRIZINE DIHYDROCHLORIDE
  4. XANAX [Concomitant]
     Active Substance: ALPRAZOLAM
  5. VELETRI [Suspect]
     Active Substance: EPOPROSTENOL
     Indication: PULMONARY HYPERTENSION
     Dosage: 15 NG/KG, PER MIN
     Route: 042
  6. LEXAPRO [Concomitant]
     Active Substance: ESCITALOPRAM OXALATE
  7. REVATIO [Concomitant]
     Active Substance: SILDENAFIL CITRATE
  8. ADCIRCA [Concomitant]
     Active Substance: TADALAFIL
  9. LOPRESSOR [Concomitant]
     Active Substance: METOPROLOL TARTRATE
  10. MULTIVITAMIN [Concomitant]
     Active Substance: VITAMINS
  11. PROTONIX [Concomitant]
     Active Substance: PANTOPRAZOLE SODIUM
  12. SODIUM CHLORIDE. [Concomitant]
     Active Substance: SODIUM CHLORIDE
  13. OPSUMIT [Suspect]
     Active Substance: MACITENTAN
     Indication: PULMONARY HYPERTENSION
     Dosage: 10 MG, QD
     Route: 048
  14. ASTELIN [Concomitant]
     Active Substance: AZELASTINE HYDROCHLORIDE
  15. LASIX [Concomitant]
     Active Substance: FUROSEMIDE
  16. SILDENAFIL CITRATE. [Concomitant]
     Active Substance: SILDENAFIL CITRATE
     Dosage: UNK
  17. FLONASE [Concomitant]
     Active Substance: FLUTICASONE PROPIONATE
  18. ZANTAC [Concomitant]
     Active Substance: RANITIDINE HYDROCHLORIDE
  19. SYMBICORT [Concomitant]
     Active Substance: BUDESONIDE\FORMOTEROL FUMARATE DIHYDRATE
  20. VELETRI [Suspect]
     Active Substance: EPOPROSTENOL
     Dosage: 10 NG/KG, PER MIN
     Route: 042
  21. ATROVENT [Concomitant]
     Active Substance: IPRATROPIUM BROMIDE
  22. MICRO K [Concomitant]
  23. NORVASC [Concomitant]
     Active Substance: AMLODIPINE BESYLATE
  24. ZOCOR [Concomitant]
     Active Substance: SIMVASTATIN

REACTIONS (20)
  - Muscular weakness [Unknown]
  - Headache [Unknown]
  - Fatigue [Unknown]
  - Catheter site erythema [Unknown]
  - Heart rate increased [Recovered/Resolved]
  - Eye haemorrhage [Unknown]
  - Flushing [Unknown]
  - Myalgia [Unknown]
  - Diarrhoea [Recovering/Resolving]
  - Erythema [Unknown]
  - Skin irritation [Unknown]
  - Nausea [Unknown]
  - Pain in jaw [Unknown]
  - Catheter site pruritus [Unknown]
  - Constipation [Unknown]
  - Pain in extremity [Unknown]
  - Pain [Unknown]
  - pH body fluid abnormal [Unknown]
  - Application site erosion [Unknown]
  - Decreased appetite [Unknown]

NARRATIVE: CASE EVENT DATE: 20170304
